FAERS Safety Report 14865108 (Version 1)
Quarter: 2018Q2

REPORT INFORMATION
  Report Type: Spontaneous
  Country: US (occurrence: US)
  Receive Date: 20180508
  Receipt Date: 20180508
  Transmission Date: 20180711
  Serious: No
  Sender: FDA-Public Use
  Company Number: US-ALKERMES INC.-ALK-2017-004015

PATIENT
  Age: 31 Year
  Sex: Male
  Weight: 81.63 kg

DRUGS (1)
  1. VIVITROL [Suspect]
     Active Substance: NALTREXONE
     Indication: DRUG DEPENDENCE
     Dosage: 380 MG, QMO
     Route: 030
     Dates: start: 20170711, end: 20170919

REACTIONS (5)
  - Injection site reaction [Unknown]
  - Injection site rash [Unknown]
  - Rash generalised [Unknown]
  - Swelling [Unknown]
  - Influenza like illness [Unknown]

NARRATIVE: CASE EVENT DATE: 20170815
